FAERS Safety Report 6542706-4 (Version None)
Quarter: 2010Q1

REPORT INFORMATION
  Report Type: 
  Country: None (occurrence: None)
  Receive Date: 20100119
  Receipt Date: 20100108
  Transmission Date: 20100710
  Serious: Yes (Hospitalization)
  Sender: FDA-Public Use
  Company Number: FR-BAXTER-2010BH000729

PATIENT
  Age: 51 Year
  Sex: Female

DRUGS (5)
  1. ENDOXAN BAXTER [Suspect]
     Indication: BREAST CANCER
     Route: 042
     Dates: start: 20091104, end: 20091125
  2. FARMORUBICINE [Suspect]
     Indication: BREAST CANCER
     Route: 042
     Dates: start: 20091104, end: 20091125
  3. FLUOROURACIL [Suspect]
     Indication: BREAST CANCER
     Route: 042
     Dates: start: 20091104, end: 20091125
  4. SOLU-MEDROL [Concomitant]
     Indication: DRUG USE FOR UNKNOWN INDICATION
     Route: 065
  5. ZOPHREN [Concomitant]
     Indication: DRUG USE FOR UNKNOWN INDICATION
     Route: 065

REACTIONS (9)
  - ANAEMIA [None]
  - ATRIAL FIBRILLATION [None]
  - ECZEMA [None]
  - LYMPHADENOPATHY [None]
  - OEDEMA [None]
  - PLEURAL EFFUSION [None]
  - PRURITUS [None]
  - PYREXIA [None]
  - SKIN HYPERPIGMENTATION [None]
